FAERS Safety Report 5663683-4 (Version None)
Quarter: 2008Q1

REPORT INFORMATION
  Report Type: 
  Country: None (occurrence: None)
  Receive Date: 20080307
  Receipt Date: 20080225
  Transmission Date: 20080703
  Serious: Yes (Death, Life-Threatening)
  Sender: FDA-Public Use
  Company Number: 1-15686827

PATIENT
  Age: 19 Year
  Sex: Female

DRUGS (10)
  1. AMMONUL [Suspect]
     Indication: HYPERAMMONAEMIA
     Dosage: 1 G DAILY/INTRAVENOUSLY
     Route: 042
     Dates: start: 20080105, end: 20080124
  2. POSCONAZOLE 400 MG [Suspect]
     Indication: PROPHYLAXIS
     Dosage: 400 MG DAILY
     Dates: start: 20071224, end: 20080108
  3. NEXIUM [Suspect]
     Indication: PROPHYLAXIS
     Dosage: 40 MG DAILY
     Dates: start: 20071226, end: 20080102
  4. AMMONAPS (SODIUM PHENYLBUTYRATE) [Concomitant]
  5. TIENAM (IMIPENEM/CILASTATIN) [Concomitant]
  6. ORGARAN (DANAPROID) [Concomitant]
  7. LEVOCARNIL (L-CARTNTINE) [Concomitant]
  8. ARGININE [Concomitant]
  9. MORPHINE [Concomitant]
  10. UNSPECIFIED SEDATIVES [Concomitant]

REACTIONS (12)
  - BONE MARROW FAILURE [None]
  - COMA [None]
  - COMPLICATIONS OF BONE MARROW TRANSPLANT [None]
  - DIALYSIS [None]
  - DRUG INEFFECTIVE [None]
  - EPILEPSY [None]
  - HAEMORRHAGE [None]
  - INTRA-ABDOMINAL HAEMATOMA [None]
  - RESPIRATORY DEPRESSION [None]
  - SEPSIS [None]
  - STEM CELL TRANSPLANT [None]
  - THROMBOCYTOPENIA [None]
